FAERS Safety Report 11700193 (Version 1)
Quarter: 2015Q4

REPORT INFORMATION
  Report Type: Spontaneous
  Country: US (occurrence: US)
  Receive Date: 20151105
  Receipt Date: 20151105
  Transmission Date: 20160304
  Serious: Yes (Hospitalization)
  Sender: FDA-Public Use
  Company Number: US-BAYER-2015-458191

PATIENT
  Age: 23 Year
  Sex: Female
  Weight: 72.56 kg

DRUGS (1)
  1. MIRENA [Suspect]
     Active Substance: LEVONORGESTREL
     Indication: CONTRACEPTION
     Dosage: 20 MCG/24HR, CONT
     Route: 015
     Dates: start: 20090915, end: 20130702

REACTIONS (9)
  - Device issue [None]
  - Abdominal pain [None]
  - Device dislocation [None]
  - Scar [None]
  - Asthenia [None]
  - Device use error [None]
  - Device dislocation [None]
  - Urinary tract infection [None]
  - Vaginal infection [None]

NARRATIVE: CASE EVENT DATE: 200910
